FAERS Safety Report 7411956-7 (Version None)
Quarter: 2011Q2

REPORT INFORMATION
  Report Type: 
  Country: None (occurrence: None)
  Receive Date: 20110404
  Receipt Date: 20110321
  Transmission Date: 20111010
  Serious: Yes (Hospitalization)
  Sender: FDA-Public Use
  Company Number: LOC-00777

PATIENT
  Age: 4 Year
  Sex: Male

DRUGS (2)
  1. HYDROCORTISONE BUTYRATE [Suspect]
     Indication: ERYTHEMA
     Dosage: TOPICAL
     Route: 061
     Dates: start: 20100918, end: 20100918
  2. HYDROCORTISONE BUTYRATE [Suspect]
     Indication: SKIN LESION
     Dosage: TOPICAL
     Route: 061
     Dates: start: 20100918, end: 20100918

REACTIONS (3)
  - LYMPHADENOPATHY [None]
  - LYMPHANGITIS [None]
  - CELLULITIS [None]
